FAERS Safety Report 12743320 (Version 1)
Quarter: 2016Q3

REPORT INFORMATION
  Report Type: Spontaneous
  Country: US (occurrence: US)
  Receive Date: 20160914
  Receipt Date: 20160914
  Transmission Date: 20161109
  Serious: Yes (Other)
  Sender: FDA-Public Use
  Company Number: US-BAYER-2016-173503

PATIENT
  Sex: Male

DRUGS (1)
  1. XOFIGO [Suspect]
     Active Substance: RADIUM RA-223 DICHLORIDE
     Indication: PROSTATE CANCER
     Dosage: TOTAL OF 6 DOSES
     Dates: start: 2014, end: 2014

REACTIONS (3)
  - Drug ineffective [None]
  - Metastases to bone [None]
  - Prostatic specific antigen increased [None]
